FAERS Safety Report 6037936-4 (Version None)
Quarter: 2009Q1

REPORT INFORMATION
  Report Type: 
  Country: None (occurrence: None)
  Receive Date: 20090115
  Receipt Date: 20090107
  Transmission Date: 20090719
  Serious: Yes (Death)
  Sender: FDA-Public Use
  Company Number: PT-BAXTER-2009BH000542

PATIENT
  Sex: Male

DRUGS (11)
  1. EXTRANEAL [Suspect]
     Indication: PERITONEAL DIALYSIS
     Route: 033
     Dates: start: 20060101
  2. PHYSIOSOL IN PLASTIC CONTAINER [Suspect]
     Indication: PERITONEAL DIALYSIS
     Route: 033
     Dates: start: 20040801, end: 20060101
  3. PHYSIOSOL IN PLASTIC CONTAINER [Suspect]
     Route: 033
     Dates: start: 20060101
  4. NUTRINEAL [Suspect]
     Indication: PERITONEAL DIALYSIS
     Route: 033
     Dates: start: 20060101
  5. CALCIUM CARBONATE [Concomitant]
  6. PROTON [Concomitant]
  7. MIMPARA [Concomitant]
  8. PENTOXIFYLLINE [Concomitant]
  9. DILBLOC [Concomitant]
  10. DARBEPOETIN ALFA [Concomitant]
  11. ADALAT CC [Concomitant]

REACTIONS (1)
  - POST PROCEDURAL SEPSIS [None]
